FAERS Safety Report 7477488-5 (Version None)
Quarter: 2011Q2

REPORT INFORMATION
  Report Type: 
  Country: None (occurrence: None)
  Receive Date: 20110513
  Receipt Date: 20110504
  Transmission Date: 20111010
  Serious: Yes (Hospitalization)
  Sender: FDA-Public Use
  Company Number: US-BIOGENIDEC-2011BI017055

PATIENT
  Age: 23 Year
  Sex: Female

DRUGS (1)
  1. AVONEX [Suspect]
     Indication: MULTIPLE SCLEROSIS
     Route: 030
     Dates: start: 20070820, end: 20090720

REACTIONS (6)
  - PARAESTHESIA [None]
  - CONVULSION [None]
  - TREMOR [None]
  - PAIN [None]
  - DEPRESSION [None]
  - MEMORY IMPAIRMENT [None]
